FAERS Safety Report 9872028 (Version 2)
Quarter: 2014Q1

REPORT INFORMATION
  Report Type: Spontaneous
  Country: US (occurrence: US)
  Receive Date: 20140205
  Receipt Date: 20140205
  Transmission Date: 20141002
  Serious: No
  Sender: FDA-Public Use
  Company Number: US-ALLERGAN-1307236US

PATIENT
  Age: 61 Year
  Sex: Male

DRUGS (5)
  1. BOTOX [Suspect]
     Indication: TORTICOLLIS
     Dosage: 50 UNITS, SINGLE
     Route: 030
     Dates: start: 201304, end: 201304
  2. BOTOX [Suspect]
  3. EFFEXOR                            /01233801/ [Concomitant]
     Indication: DIZZINESS
     Dosage: UNK
     Route: 048
  4. EFFEXOR                            /01233801/ [Concomitant]
     Indication: DEPRESSION
  5. DIAZEPAM [Concomitant]
     Indication: DIZZINESS
     Dosage: 5 MG, TID
     Route: 048

REACTIONS (2)
  - Influenza like illness [Not Recovered/Not Resolved]
  - Malaise [Not Recovered/Not Resolved]
